FAERS Safety Report 4382989-2 (Version None)
Quarter: 2004Q2

REPORT INFORMATION
  Report Type: 
  Country: None (occurrence: None)
  Receive Date: 20040622
  Receipt Date: 20040617
  Transmission Date: 20050107
  Serious: Yes (Other)
  Sender: FDA-Public Use
  Company Number: 001768

PATIENT
  Sex: Female

DRUGS (8)
  1. MEDROXYPROGESTERONE ACETATE [Suspect]
  2. PREMARIN [Suspect]
  3. MEDROXYPROGESTERONE ACETATE [Suspect]
  4. ESTROGENS NOS (ESTROGENS NOS) [Suspect]
  5. PROVERA [Suspect]
  6. ORTHO-PREFEST (ESTRADIOL, NORGESTIMATE) [Suspect]
  7. ESTRATEST [Suspect]
  8. PREMPHASE (PREMARIN;CYCRIN 14/14) [Suspect]

REACTIONS (1)
  - BREAST CANCER [None]
